FAERS Safety Report 16349267 (Version 3)
Quarter: 2019Q2

REPORT INFORMATION
  Report Type: Spontaneous
  Country: CN (occurrence: CN)
  Receive Date: 20190523
  Receipt Date: 20190606
  Transmission Date: 20190711
  Serious: Yes (Death, Life-Threatening, Hospitalization, Other)
  Sender: FDA-Public Use
  Company Number: CN-SA-2019SA135727

PATIENT
  Age: 88 Year
  Sex: Male
  Weight: 70 kg

DRUGS (9)
  1. CLOPIDOGREL BISULFATE. [Suspect]
     Active Substance: CLOPIDOGREL BISULFATE
     Dosage: 50 MG, QD
  2. CLOPIDOGREL BISULFATE. [Suspect]
     Active Substance: CLOPIDOGREL BISULFATE
     Indication: ACUTE CORONARY SYNDROME
     Dosage: UNK UNK, UNK
     Route: 065
     Dates: start: 20151104, end: 20151111
  3. NIFEDIPINE. [Concomitant]
     Active Substance: NIFEDIPINE
     Indication: ACUTE CORONARY SYNDROME
     Dosage: UNK UNK, UNK
     Route: 065
     Dates: start: 20151104
  4. ISOSORBIDE MONONITRATE. [Concomitant]
     Active Substance: ISOSORBIDE MONONITRATE
     Indication: ACUTE CORONARY SYNDROME
     Dosage: UNK UNK, UNK
     Route: 065
     Dates: start: 20151104
  5. ATORVASTATIN [Concomitant]
     Active Substance: ATORVASTATIN
     Indication: ACUTE CORONARY SYNDROME
     Dosage: UNK UNK, UNK
     Route: 065
     Dates: start: 20151104
  6. ACETYLSALICYLIC ACID [Suspect]
     Active Substance: ASPIRIN
     Dosage: UNK, UNK
     Route: 065
     Dates: start: 20151104, end: 20151111
  7. LOW MOLECULAR WEIGHT HEPARIN [Suspect]
     Active Substance: UNSPECIFIED INGREDIENT
     Indication: ACUTE CORONARY SYNDROME
     Dosage: UNK, UNK
     Route: 065
     Dates: start: 20151104, end: 20151111
  8. METOPROLOL. [Concomitant]
     Active Substance: METOPROLOL
     Indication: ACUTE CORONARY SYNDROME
     Dosage: UNK UNK, UNK
     Route: 065
  9. BENAZEPRIL [Concomitant]
     Active Substance: BENAZEPRIL HYDROCHLORIDE
     Indication: ACUTE CORONARY SYNDROME
     Dosage: UNK UNK, UNK
     Route: 065
     Dates: start: 20151104

REACTIONS (20)
  - Sepsis [Unknown]
  - White blood cell count increased [Unknown]
  - Faeces discoloured [Not Recovered/Not Resolved]
  - Multiple organ dysfunction syndrome [Fatal]
  - Haematochezia [Not Recovered/Not Resolved]
  - Productive cough [Unknown]
  - Dizziness [Unknown]
  - Condition aggravated [Unknown]
  - Cough [Unknown]
  - Loss of consciousness [Unknown]
  - Lung disorder [Unknown]
  - Haemoglobin decreased [Unknown]
  - Pyrexia [Unknown]
  - Muscle twitching [Unknown]
  - Ventricular tachycardia [Unknown]
  - Body temperature abnormal [Unknown]
  - Neutrophil count increased [Unknown]
  - Gastrointestinal haemorrhage [Unknown]
  - Chest pain [Unknown]
  - Bundle branch block right [Unknown]

NARRATIVE: CASE EVENT DATE: 20151111
